FAERS Safety Report 22231022 (Version 1)
Quarter: 2023Q2

REPORT INFORMATION
  Report Type: Spontaneous
  Country: US (occurrence: None)
  Receive Date: 20230420
  Receipt Date: 20230420
  Transmission Date: 20230722
  Serious: No
  Sender: FDA-Public Use
  Company Number: US-ROCHE-3182508

PATIENT
  Sex: Female

DRUGS (3)
  1. KADCYLA [Suspect]
     Active Substance: ADO-TRASTUZUMAB EMTANSINE
     Indication: Breast cancer
     Route: 065
     Dates: start: 202012, end: 2022
  2. PERJETA [Suspect]
     Active Substance: PERTUZUMAB
     Indication: Product used for unknown indication
     Route: 065
     Dates: start: 2013, end: 2018
  3. HERCEPTIN [Suspect]
     Active Substance: TRASTUZUMAB
     Indication: Product used for unknown indication
     Route: 065
     Dates: start: 201301, end: 2020

REACTIONS (8)
  - Reading disorder [Unknown]
  - Altered pitch perception [Unknown]
  - Myopia [Unknown]
  - Visual impairment [Unknown]
  - Upper respiratory tract infection [Unknown]
  - Ear infection [Unknown]
  - Tympanic membrane perforation [Unknown]
  - Ill-defined disorder [Unknown]
